FAERS Safety Report 6517695-9 (Version None)
Quarter: 2009Q4

REPORT INFORMATION
  Report Type: 
  Country: None (occurrence: None)
  Receive Date: 20091224
  Receipt Date: 20091218
  Transmission Date: 20100525
  Serious: Yes (Other)
  Sender: FDA-Public Use
  Company Number: GB-ASTRAZENECA-2009SE32894

PATIENT
  Age: 2 Year
  Sex: Female

DRUGS (5)
  1. PROPOFOL [Suspect]
     Indication: INDUCTION OF ANAESTHESIA
  2. DEXTROSE [Concomitant]
     Route: 042
  3. SEVOFLURANE [Concomitant]
     Indication: MAINTENANCE OF ANAESTHESIA
  4. FENTANYL-100 [Concomitant]
  5. ATRACURIUM [Concomitant]

REACTIONS (2)
  - HYPOTENSION [None]
  - HYPOVOLAEMIA [None]
